FAERS Safety Report 7364111-3 (Version None)
Quarter: 2011Q1

REPORT INFORMATION
  Report Type: 
  Country: None (occurrence: None)
  Receive Date: 20110321
  Receipt Date: 20110315
  Transmission Date: 20110831
  Serious: Yes (Death, Hospitalization, Other)
  Sender: FDA-Public Use
  Company Number: PHHY2011JP12985

PATIENT
  Sex: Female
  Weight: 30 kg

DRUGS (13)
  1. CO-DIOVAN [Suspect]
     Indication: HYPERTENSION
     Dosage: UNK
     Route: 048
     Dates: start: 20091120
  2. EPOETIN ALFA [Concomitant]
     Indication: RENAL FAILURE CHRONIC
  3. LANIRAPID [Concomitant]
     Dosage: 0.1 MG, UNK
     Route: 048
     Dates: start: 20070331, end: 20100216
  4. ITOROL [Concomitant]
     Dosage: 40 MG, UNK
     Route: 048
     Dates: start: 20070331, end: 20100216
  5. MAGLAX [Concomitant]
     Dosage: 1.5 G, UNK
     Route: 048
  6. CONIEL [Concomitant]
     Indication: HYPERTENSION
     Dosage: UNK
     Route: 048
     Dates: start: 20080607, end: 20100216
  7. EPOETIN ALFA [Concomitant]
     Indication: ANAEMIA
     Dosage: 6000 IU, UNK
     Route: 058
     Dates: start: 20091225, end: 20100212
  8. LASIX [Concomitant]
     Indication: HYPERTENSION
     Dosage: 40 MG, UNK
     Route: 048
     Dates: start: 20070331, end: 20100216
  9. MARZULENE S [Concomitant]
     Dosage: 1.5 G, UNK
     Route: 048
     Dates: start: 20070331, end: 20100216
  10. SIGMART [Concomitant]
     Dosage: 15 MG,UNK
     Route: 048
     Dates: start: 20070331, end: 20100216
  11. NATEGLINIDE [Concomitant]
     Dosage: 270 MG , UNK
     Route: 048
     Dates: start: 20080905, end: 20100216
  12. CALCIUM POLYSTYRENE SULFONATE [Concomitant]
     Dosage: 50 G, UNK
     Route: 048
  13. DEPAS [Concomitant]
     Indication: INSOMNIA
     Dosage: UNK
     Route: 048
     Dates: start: 20100108, end: 20100216

REACTIONS (6)
  - CONDITION AGGRAVATED [None]
  - HYPERKALAEMIA [None]
  - DEATH [None]
  - RENAL FAILURE [None]
  - HYPERURICAEMIA [None]
  - PSYCHOTIC DISORDER [None]
